FAERS Safety Report 9242921 (Version 2)
Quarter: 2013Q2

REPORT INFORMATION
  Report Type: Spontaneous
  Country: US (occurrence: US)
  Receive Date: 20130419
  Receipt Date: 20130606
  Transmission Date: 20140414
  Serious: Yes (Disabling, Other)
  Sender: FDA-Public Use
  Company Number: US-ASTRAZENECA-2013SE24019

PATIENT
  Age: 973 Month
  Sex: Male
  Weight: 108.9 kg

DRUGS (7)
  1. NEXIUM [Suspect]
     Route: 048
  2. TENORMIN [Suspect]
     Route: 048
  3. LISINOPRIL [Suspect]
     Dosage: TWO TIMES A DAY
     Route: 048
  4. OMEPRAZOLE [Suspect]
     Dosage: GENERIC
     Route: 065
  5. NORVASC [Concomitant]
  6. LIPITOR [Concomitant]
  7. INSULIN [Concomitant]
     Dosage: DAILY

REACTIONS (2)
  - Thoracic vertebral fracture [Recovered/Resolved with Sequelae]
  - Drug dose omission [Unknown]
